FAERS Safety Report 19054134 (Version 2)
Quarter: 2021Q2

REPORT INFORMATION
  Report Type: Spontaneous
  Country: TR (occurrence: TR)
  Receive Date: 20210324
  Receipt Date: 20210412
  Transmission Date: 20210717
  Serious: Yes (Death)
  Sender: FDA-Public Use
  Company Number: TR-JNJFOC-20210337214

PATIENT
  Age: 85 Year
  Sex: Female
  Weight: 72 kg

DRUGS (1)
  1. DARZALEX [Suspect]
     Active Substance: DARATUMUMAB
     Indication: PLASMA CELL MYELOMA
     Dosage: 16 MG/KG/DAY, ON 1ST8TH WEEKS; ONCE A WEEK, IV; ON 9TH24TH WEEKS; ONCE IN 2 WEEKS, IV
     Route: 042
     Dates: start: 202010

REACTIONS (1)
  - Cardiac failure chronic [Fatal]
